FAERS Safety Report 24226077 (Version 1)
Quarter: 2024Q3

REPORT INFORMATION
  Report Type: Spontaneous
  Country: GB (occurrence: GB)
  Receive Date: 20240820
  Receipt Date: 20240820
  Transmission Date: 20241017
  Serious: Yes (Other)
  Sender: AUROBINDO
  Company Number: GB-MHRA-MIDB-aea73cb5-b1d6-48dd-822a-8a1a84b2a87d

PATIENT
  Age: 68 Year

DRUGS (6)
  1. BISOPROLOL [Suspect]
     Active Substance: BISOPROLOL\BISOPROLOL FUMARATE
     Indication: Product used for unknown indication
     Dosage: 2.5 MILLIGRAM, ONCE A DAY (2.5MG ONCE DAILY)
     Route: 048
     Dates: start: 20240611
  2. CLOPIDOGREL [Suspect]
     Active Substance: CLOPIDOGREL BISULFATE
     Indication: Product used for unknown indication
     Dosage: 75 MILLIGRAM, ONCE A DAY (75MG ONCE DAILY)
     Route: 048
     Dates: start: 20240617
  3. ISOSORBIDE MONONITRATE [Suspect]
     Active Substance: ISOSORBIDE MONONITRATE
     Indication: Product used for unknown indication
     Dosage: 30 MILLIGRAM, ONCE A DAY (30MG ONCE DAILY)
     Route: 048
     Dates: start: 20240611
  4. RAMIPRIL [Suspect]
     Active Substance: RAMIPRIL
     Indication: Product used for unknown indication
     Dosage: 1.25 MILLIGRAM, ONCE A DAY (1.25MG ONCE DAILY)
     Route: 065
     Dates: start: 20240611
  5. ASPIRIN [Suspect]
     Active Substance: ASPIRIN
     Indication: Product used for unknown indication
     Dosage: 75 MILLIGRAM, ONCE A DAY (75MG ONCE DAILY)
     Route: 048
     Dates: start: 20240611
  6. TICAGRELOR [Suspect]
     Active Substance: TICAGRELOR
     Indication: Product used for unknown indication
     Dosage: 90 MILLIGRAM, TWO TIMES A DAY (90MG TABLETS, TWICE A DAY)
     Route: 048
     Dates: start: 20240611, end: 20240616

REACTIONS (5)
  - Drug hypersensitivity [Unknown]
  - Lymphorrhoea [Unknown]
  - Rash [Unknown]
  - Skin weeping [Unknown]
  - Urticaria [Not Recovered/Not Resolved]

NARRATIVE: CASE EVENT DATE: 20240710
